FAERS Safety Report 11159889 (Version 6)
Quarter: 2015Q4

REPORT INFORMATION
  Report Type: Report from Study
  Country: US (occurrence: US)
  Receive Date: 20150603
  Receipt Date: 20151008
  Transmission Date: 20160304
  Serious: Yes (Other)
  Sender: FDA-Public Use
  Company Number: US-EISAI MEDICAL RESEARCH-EC-2015-006844

PATIENT
  Age: 73 Year
  Sex: Male
  Weight: 79 kg

DRUGS (22)
  1. LENVIMA [Suspect]
     Active Substance: LENVATINIB
     Route: 048
     Dates: start: 2015, end: 20150506
  2. PRILOSEC [Concomitant]
     Active Substance: OMEPRAZOLE MAGNESIUM
  3. WELCHOL [Concomitant]
     Active Substance: COLESEVELAM HYDROCHLORIDE
  4. SUTENT [Concomitant]
     Active Substance: SUNITINIB MALATE
  5. LISINOPRIL. [Concomitant]
     Active Substance: LISINOPRIL
  6. LEVOXYL [Concomitant]
     Active Substance: LEVOTHYROXINE SODIUM
  7. TAMSULOSIN [Concomitant]
     Active Substance: TAMSULOSIN
  8. COD LIVER OIL [Concomitant]
     Active Substance: COD LIVER OIL
  9. FLOMAX [Concomitant]
     Active Substance: TAMSULOSIN HYDROCHLORIDE
  10. OMEGA 3 [Concomitant]
     Active Substance: OMEGA-3 FATTY ACIDS
  11. TURMERIC [Concomitant]
     Active Substance: TURMERIC
  12. GUAIFENESIN. [Concomitant]
     Active Substance: GUAIFENESIN
  13. ATENOLOL. [Concomitant]
     Active Substance: ATENOLOL
  14. CALCIUM + D [Concomitant]
     Active Substance: CALCIUM\VITAMIN D
  15. METFORMIN [Concomitant]
     Active Substance: METFORMIN HYDROCHLORIDE
  16. BENADRYL [Concomitant]
     Active Substance: DIPHENHYDRAMINE HYDROCHLORIDE
  17. CALTRATE [Concomitant]
     Active Substance: CALCIUM CARBONATE
  18. LENVIMA [Suspect]
     Active Substance: LENVATINIB
     Indication: HUERTHLE CELL CARCINOMA
     Route: 048
     Dates: start: 20150311, end: 2015
  19. LENVIMA [Suspect]
     Active Substance: LENVATINIB
     Route: 048
     Dates: start: 201506, end: 20150716
  20. LENVIMA [Suspect]
     Active Substance: LENVATINIB
     Route: 048
     Dates: start: 20150924
  21. MUCINEX [Concomitant]
     Active Substance: GUAIFENESIN
  22. CARDIZEM [Concomitant]
     Active Substance: DILTIAZEM HYDROCHLORIDE

REACTIONS (12)
  - Palmar-plantar erythrodysaesthesia syndrome [Recovered/Resolved]
  - Hyperammonaemia [Recovered/Resolved]
  - Drug dose omission [Recovered/Resolved]
  - Posterior reversible encephalopathy syndrome [Recovering/Resolving]
  - Hepatic enzyme increased [Recovered/Resolved]
  - Pain in extremity [Recovered/Resolved]
  - Hiccups [Unknown]
  - Hyperbilirubinaemia [Recovered/Resolved]
  - Feeling cold [Not Recovered/Not Resolved]
  - Hypertension [Recovered/Resolved]
  - Hepatotoxicity [Not Recovered/Not Resolved]
  - Fatigue [Recovering/Resolving]

NARRATIVE: CASE EVENT DATE: 2015
